FAERS Safety Report 18581891 (Version 1)
Quarter: 2020Q4

REPORT INFORMATION
  Report Type: Spontaneous
  Country: US (occurrence: US)
  Receive Date: 20201205
  Receipt Date: 20201205
  Transmission Date: 20210114
  Serious: Yes (Hospitalization, Other)
  Sender: FDA-Public Use
  Company Number: US-CADILA HEALTHCARE LIMITED-US-ZYDUS-058666

PATIENT

DRUGS (6)
  1. TINIDAZOLE. [Concomitant]
     Active Substance: TINIDAZOLE
     Dosage: 1000 MILLIGRAM
     Route: 048
  2. TINIDAZOLE. [Concomitant]
     Active Substance: TINIDAZOLE
     Indication: TRICHOMONIASIS
     Dosage: 3.3 MILLIGRAM
     Route: 048
  3. TINIDAZOLE. [Concomitant]
     Active Substance: TINIDAZOLE
     Dosage: 10 MILLIGRAM
     Route: 048
  4. METRONIDAZOLE. [Suspect]
     Active Substance: METRONIDAZOLE
     Dosage: 30 MILLIGRAM
     Route: 065
  5. METRONIDAZOLE. [Suspect]
     Active Substance: METRONIDAZOLE
     Indication: TRICHOMONIASIS
     Dosage: 500 MILLIGRAM, BID (TWICE DAILY)
     Route: 048
  6. METRONIDAZOLE. [Suspect]
     Active Substance: METRONIDAZOLE
     Dosage: 0.5 MILLIGRAM
     Route: 042

REACTIONS (7)
  - Salivary hypersecretion [Recovered/Resolved]
  - Skin burning sensation [Recovered/Resolved]
  - Urticaria [Recovered/Resolved]
  - Vomiting [Recovered/Resolved]
  - Dyspnoea [Recovered/Resolved]
  - Pruritus [Recovered/Resolved]
  - Feeling hot [Recovered/Resolved]
